FAERS Safety Report 5322355-6 (Version None)
Quarter: 2007Q2

REPORT INFORMATION
  Report Type: 
  Country: None (occurrence: None)
  Receive Date: 20070511
  Receipt Date: 20070504
  Transmission Date: 20071010
  Serious: Yes (Other)
  Sender: FDA-Public Use
  Company Number: GB-ELI_LILLY_AND_COMPANY-GB200704003500

PATIENT
  Age: 78 Year
  Sex: Female
  Weight: 81 kg

DRUGS (2)
  1. HUMALOG [Suspect]
     Indication: DIABETES MELLITUS NON-INSULIN-DEPENDENT
     Dosage: 28 U, EACH MORNING
     Route: 058
  2. HUMALOG [Suspect]
     Dosage: 40 U, EACH EVENING
     Route: 058

REACTIONS (2)
  - BALANCE DISORDER [None]
  - BLOOD GLUCOSE FLUCTUATION [None]
